FAERS Safety Report 7718317-1 (Version None)
Quarter: 2011Q3

REPORT INFORMATION
  Report Type: 
  Country: None (occurrence: None)
  Receive Date: 20110830
  Receipt Date: 20110825
  Transmission Date: 20111222
  Serious: No
  Sender: FDA-Public Use
  Company Number: US-PFIZER INC-2011198093

PATIENT
  Sex: Female
  Weight: 61.678 kg

DRUGS (4)
  1. ADVIL LIQUI-GELS [Suspect]
     Indication: HEADACHE
  2. MOTRIN [Suspect]
     Indication: HEADACHE
  3. ADVIL LIQUI-GELS [Suspect]
     Indication: MYALGIA
     Dosage: 200 MG, UNK
  4. MOTRIN [Suspect]
     Indication: MYALGIA
     Dosage: UNK
     Route: 048

REACTIONS (3)
  - HYPERCHLORHYDRIA [None]
  - GASTRIC DISORDER [None]
  - DRUG TOLERANCE [None]
